FAERS Safety Report 22337742 (Version 1)
Quarter: 2023Q2

REPORT INFORMATION
  Report Type: Spontaneous
  Country: US (occurrence: US)
  Receive Date: 20230518
  Receipt Date: 20230518
  Transmission Date: 20230721
  Serious: No
  Sender: FDA-Public Use
  Company Number: US-COLLEGIUM PHARMACEUTICAL, INC.-2022CGM00274

PATIENT
  Sex: Female

DRUGS (1)
  1. XTAMPZA ER [Suspect]
     Active Substance: OXYCODONE
     Dosage: UNK
     Route: 048
     Dates: start: 20220411, end: 202204

REACTIONS (4)
  - Drug intolerance [Unknown]
  - Nausea [Unknown]
  - Headache [Unknown]
  - Therapy change [Recovered/Resolved]

NARRATIVE: CASE EVENT DATE: 20220401
